FAERS Safety Report 8924836 (Version 1)
Quarter: 2012Q4

REPORT INFORMATION
  Report Type: 
  Country: US (occurrence: US)
  Receive Date: 20121126
  Receipt Date: 20121126
  Transmission Date: 20130627
  Serious: Yes (Other)
  Sender: FDA-Public Use
  Company Number: US-BAYER-2012-121468

PATIENT
  Age: 28 Year
  Sex: Female
  Weight: 134.69 kg

DRUGS (6)
  1. YAZ [Suspect]
  2. HYDROCHLOROTHIAZIDE [Concomitant]
     Dosage: 12.5 mg, daily
     Dates: start: 20090831
  3. ALLEGRA [Concomitant]
     Dosage: 1 daily
     Dates: start: 20090701
  4. SOMA [Concomitant]
     Dosage: 350 mg, 4 times a day as needed
     Dates: start: 20090824, end: 20090831
  5. VICODIN [Concomitant]
     Dosage: 5/500 / one every 6 hours as needed
     Dates: start: 20090831
  6. IBUPROFEN [Concomitant]
     Dosage: UNK
     Dates: start: 20090831

REACTIONS (2)
  - Deep vein thrombosis [None]
  - Pulmonary embolism [None]
